FAERS Safety Report 6749617-X (Version None)
Quarter: 2010Q2

REPORT INFORMATION
  Report Type: 
  Country: None (occurrence: None)
  Receive Date: 20100601
  Receipt Date: 20100525
  Transmission Date: 20101027
  Serious: Yes (Hospitalization)
  Sender: FDA-Public Use
  Company Number: A0861226A

PATIENT
  Age: 63 Year
  Sex: Female

DRUGS (11)
  1. ADVAIR DISKUS 100/50 [Suspect]
     Indication: CHRONIC OBSTRUCTIVE PULMONARY DISEASE
     Dosage: 1PUFF TWICE PER DAY
     Route: 055
  2. ETHAMBUTOL HYDROCHLORIDE [Concomitant]
  3. RIFAMPIN [Concomitant]
  4. CLARITHROMYCIN [Concomitant]
  5. DILANTIN [Concomitant]
  6. LISINOPRIL [Concomitant]
  7. NORVASC [Concomitant]
  8. METOPROLOL TARTRATE [Concomitant]
  9. PROTONIX [Concomitant]
  10. MIRTAZAPINE [Concomitant]
  11. COMBIVENT [Concomitant]

REACTIONS (7)
  - ASTHENIA [None]
  - BLOOD SODIUM DECREASED [None]
  - DIARRHOEA [None]
  - DYSURIA [None]
  - NAUSEA [None]
  - PNEUMONIA [None]
  - WEIGHT DECREASED [None]
